FAERS Safety Report 12782716 (Version 4)
Quarter: 2017Q1

REPORT INFORMATION
  Report Type: Spontaneous
  Country: US (occurrence: US)
  Receive Date: 20160927
  Receipt Date: 20170123
  Transmission Date: 20170428
  Serious: Yes (Hospitalization)
  Sender: FDA-Public Use
  Company Number: US-UNITED THERAPEUTICS-UNT-2016-014801

PATIENT
  Age: 60 Year
  Sex: Female
  Weight: 156.46 kg

DRUGS (6)
  1. ELIQUIS [Concomitant]
     Active Substance: APIXABAN
     Indication: PRODUCT USED FOR UNKNOWN INDICATION
  2. REMODULIN [Suspect]
     Active Substance: TREPROSTINIL
     Indication: PULMONARY ARTERIAL HYPERTENSION
     Dosage: 0.03225 ?G/KG, CONTINUING
     Route: 041
     Dates: start: 20150523
  3. REMODULIN [Suspect]
     Active Substance: TREPROSTINIL
     Dosage: 0.024 ?G/KG, CONTINUING
     Route: 041
  4. REMODULIN [Suspect]
     Active Substance: TREPROSTINIL
     Dosage: 0.01725 ?G/KG, CONTINUING
     Route: 041
  5. ADCIRCA [Concomitant]
     Active Substance: TADALAFIL
     Indication: PRODUCT USED FOR UNKNOWN INDICATION
  6. LETAIRIS [Concomitant]
     Active Substance: AMBRISENTAN
     Indication: PRODUCT USED FOR UNKNOWN INDICATION

REACTIONS (12)
  - Device related infection [Recovering/Resolving]
  - Asthma [Unknown]
  - Pyrexia [Unknown]
  - Nasal congestion [Unknown]
  - Pain in jaw [Unknown]
  - Dyspnoea [Unknown]
  - Neck pain [Recovered/Resolved]
  - Diarrhoea [Recovering/Resolving]
  - Malaise [Unknown]
  - Nausea [Unknown]
  - Blood culture positive [Recovering/Resolving]
  - Headache [Unknown]

NARRATIVE: CASE EVENT DATE: 20160917
